FAERS Safety Report 5430697-9 (Version None)
Quarter: 2007Q3

REPORT INFORMATION
  Report Type: 
  Country: None (occurrence: None)
  Receive Date: 20070830
  Receipt Date: 20070821
  Transmission Date: 20080115
  Serious: Yes (Hospitalization)
  Sender: FDA-Public Use
  Company Number: NL-AVENTIS-200717638GDDC

PATIENT
  Age: 19 Year
  Sex: Female
  Weight: 69 kg

DRUGS (4)
  1. TELFAST                            /01314201/ [Suspect]
     Indication: ANTIALLERGIC THERAPY
     Route: 048
  2. RIGEVIDON                          /00022701/ [Suspect]
     Dosage: DOSE: 1 STRIP
     Dates: end: 20070701
  3. XYZAL [Suspect]
  4. NASONEX [Suspect]

REACTIONS (1)
  - CHOLESTASIS [None]
